FAERS Safety Report 5404245-3 (Version None)
Quarter: 2007Q3

REPORT INFORMATION
  Report Type: 
  Country: None (occurrence: None)
  Receive Date: 20070731
  Receipt Date: 20070717
  Transmission Date: 20080115
  Serious: Yes (Hospitalization)
  Sender: FDA-Public Use
  Company Number: 07US000902

PATIENT
  Age: 58 Year
  Sex: Female

DRUGS (5)
  1. LITHOBID [Suspect]
     Indication: BIPOLAR DISORDER
     Dosage: 300 MG, QD,; 600 MG, QD,; 900 MG, QD,
     Dates: start: 20010101
  2. LITHIUM CARBONATE [Suspect]
     Indication: BIPOLAR DISORDER
     Dosage: 1200 MG, QD,
  3. LAMOTRIGINE (LAMOTIRGINE) [Concomitant]
  4. WELLBUTRIN [Concomitant]
  5. SEROQUEL [Concomitant]

REACTIONS (13)
  - AMNESIA [None]
  - ANKLE FRACTURE [None]
  - DISTURBANCE IN ATTENTION [None]
  - DRUG EXPOSURE DURING PREGNANCY [None]
  - DRUG LEVEL INCREASED [None]
  - DYSPNOEA [None]
  - EXTRASYSTOLES [None]
  - MIDDLE INSOMNIA [None]
  - PSYCHOTIC DISORDER [None]
  - RENAL FUNCTION TEST ABNORMAL [None]
  - SICK SINUS SYNDROME [None]
  - STRESS [None]
  - THYROID DISORDER [None]
